FAERS Safety Report 9285584 (Version 2)
Quarter: 2013Q2

REPORT INFORMATION
  Report Type: Spontaneous
  Country: IT (occurrence: IT)
  Receive Date: 20130513
  Receipt Date: 20130520
  Transmission Date: 20140414
  Serious: Yes (Hospitalization)
  Sender: FDA-Public Use
  Company Number: PHHY2013IT046871

PATIENT
  Age: 88 Year
  Sex: Male

DRUGS (4)
  1. VALPRESSION [Suspect]
     Indication: HYPERTENSION
     Dosage: 320 MG, QD
     Route: 048
     Dates: start: 20130201, end: 20130502
  2. VALPRESSION [Suspect]
     Dosage: 160 MG, QD
     Dates: start: 20130514
  3. LUVION [Suspect]
     Indication: HYPERTENSION
     Dosage: 50 MG, QD
     Route: 048
     Dates: start: 20130201, end: 20130502
  4. CARDIRENE [Concomitant]
     Indication: MYOCARDIAL ISCHAEMIA
     Dosage: 75 MG, UNK
     Dates: start: 20100101, end: 20130502

REACTIONS (2)
  - Paraesthesia [Recovering/Resolving]
  - Hyperkalaemia [Recovering/Resolving]
